FAERS Safety Report 15969011 (Version 2)
Quarter: 2019Q4

REPORT INFORMATION
  Report Type: Spontaneous
  Country: US (occurrence: US)
  Receive Date: 20190215
  Receipt Date: 20191004
  Transmission Date: 20200122
  Serious: Yes (Other)
  Sender: FDA-Public Use
  Company Number: US-BAUSCH-SYM-2013-01720

PATIENT
  Sex: Female
  Weight: 45.4 kg

DRUGS (12)
  1. DIASTAT [Suspect]
     Active Substance: DIAZEPAM
     Dosage: APPROXIMATELY 12 SYRINGES
     Route: 054
  2. CALCIUM [Concomitant]
     Active Substance: CALCIUM
     Indication: PRODUCT USED FOR UNKNOWN INDICATION
  3. DIASTAT [Suspect]
     Active Substance: DIAZEPAM
     Indication: GENERALISED TONIC-CLONIC SEIZURE
     Dosage: AS NEEDED, ACUDIAL 20 MG DELIVERY SYSTEM TWIN PACK
     Route: 054
     Dates: start: 201302
  4. DIASTAT [Suspect]
     Active Substance: DIAZEPAM
     Dosage: AS NEEDED, ACUDIAL 20 MG DELIVERY SYSTEM TWIN PACK
     Route: 054
     Dates: end: 201901
  5. POTIGA [Concomitant]
     Active Substance: EZOGABINE
     Indication: PRODUCT USED FOR UNKNOWN INDICATION
  6. MODAFINIL. [Concomitant]
     Active Substance: MODAFINIL
     Indication: SOMNOLENCE
  7. LORAZEPAM. [Concomitant]
     Active Substance: LORAZEPAM
     Indication: PRODUCT USED FOR UNKNOWN INDICATION
     Dosage: 1-2 MG
  8. ONFI [Concomitant]
     Active Substance: CLOBAZAM
     Indication: PRODUCT USED FOR UNKNOWN INDICATION
  9. MAXALT [Concomitant]
     Active Substance: RIZATRIPTAN BENZOATE
     Indication: PRODUCT USED FOR UNKNOWN INDICATION
  10. FENTANYL. [Concomitant]
     Active Substance: FENTANYL
     Indication: PRODUCT USED FOR UNKNOWN INDICATION
     Dosage: PATCH
  11. DIASTAT [Suspect]
     Active Substance: DIAZEPAM
     Dosage: HALF A SYRINGE
     Route: 054
  12. VITAMIN D3 [Concomitant]
     Active Substance: CHOLECALCIFEROL
     Indication: PRODUCT USED FOR UNKNOWN INDICATION

REACTIONS (8)
  - Insurance issue [Unknown]
  - Aura [Not Recovered/Not Resolved]
  - Blood pressure increased [Not Recovered/Not Resolved]
  - Drug ineffective [Unknown]
  - Therapy cessation [Unknown]
  - Joint dislocation [Unknown]
  - Heart rate increased [Not Recovered/Not Resolved]
  - Rib fracture [Unknown]

NARRATIVE: CASE EVENT DATE: 2018
